FAERS Safety Report 4590534-1 (Version None)
Quarter: 2005Q1

REPORT INFORMATION
  Report Type: 
  Country: None (occurrence: None)
  Receive Date: 20050224
  Receipt Date: 20050216
  Transmission Date: 20050727
  Serious: Yes (Disabling)
  Sender: FDA-Public Use
  Company Number: JP-ROCHE-395968

PATIENT
  Age: 45 Year
  Sex: Female
  Weight: 44 kg

DRUGS (16)
  1. MYCOPHENOLATE MOFETIL [Suspect]
     Route: 048
     Dates: start: 20030305, end: 20030319
  2. MYCOPHENOLATE MOFETIL [Suspect]
     Route: 048
     Dates: start: 20030320, end: 20030515
  3. MYCOPHENOLATE MOFETIL [Suspect]
     Route: 048
     Dates: start: 20030516
  4. PREDNISOLONE [Suspect]
     Route: 048
  5. AZATHIOPRINE [Suspect]
     Route: 048
     Dates: start: 20021225, end: 20030207
  6. AZATHIOPRINE [Suspect]
     Route: 048
     Dates: start: 20030219, end: 20030304
  7. CYCLOSPORINE [Suspect]
     Route: 048
     Dates: start: 20021225, end: 20030224
  8. CYCLOSPORINE [Suspect]
     Route: 048
     Dates: start: 20030225
  9. DENOSINE [Concomitant]
     Route: 042
  10. DENOSINE [Concomitant]
     Route: 048
  11. STEROID NOS [Concomitant]
     Route: 048
     Dates: start: 20021225
  12. STEROID NOS [Concomitant]
     Dates: start: 20030101, end: 20030103
  13. BAKTAR [Concomitant]
     Route: 048
     Dates: start: 20030108
  14. DIFLUCAN [Concomitant]
     Route: 048
     Dates: start: 20030108
  15. GASTER [Concomitant]
     Route: 048
     Dates: start: 20030108
  16. ZOVIRAX [Concomitant]
     Dosage: DISCONTINUED ON 2 MAY 2003 AND RESTARTED ON 17 JUNE 2003
     Route: 048
     Dates: start: 20030314

REACTIONS (4)
  - CYTOMEGALOVIRUS ANTIGEN POSITIVE [None]
  - FRACTURE [None]
  - LUNG TRANSPLANT REJECTION [None]
  - WHITE BLOOD CELL COUNT DECREASED [None]
